FAERS Safety Report 5075664-2 (Version None)
Quarter: 2006Q3

REPORT INFORMATION
  Report Type: 
  Country: None (occurrence: None)
  Receive Date: 20060809
  Receipt Date: 20060114
  Transmission Date: 20061208
  Serious: No
  Sender: FDA-Public Use
  Company Number: US-AMGEN-US164880

PATIENT
  Sex: Female

DRUGS (3)
  1. EPOGEN [Suspect]
     Indication: PRE-EXISTING DISEASE
     Route: 058
     Dates: start: 20051216
  2. PEG-INTRON [Concomitant]
  3. RIBAVIRIN [Concomitant]

REACTIONS (1)
  - INJECTION SITE PAIN [None]
